FAERS Safety Report 5602579-0 (Version None)
Quarter: 2008Q1

REPORT INFORMATION
  Report Type: 
  Country: None (occurrence: None)
  Receive Date: 20080125
  Receipt Date: 20080114
  Transmission Date: 20080703
  Serious: Yes (Hospitalization)
  Sender: FDA-Public Use
  Company Number: FR-WYE-H02260408

PATIENT
  Age: 84 Year
  Sex: Female

DRUGS (6)
  1. CORDARONE [Suspect]
     Indication: ARRHYTHMIA
     Route: 048
     Dates: end: 20070821
  2. ATACAND [Concomitant]
     Indication: HYPERTENSION
     Route: 048
  3. VASTAREL [Concomitant]
     Indication: ANGINA PECTORIS
     Route: 048
  4. DEROXAT [Interacting]
     Indication: DEPRESSION
     Route: 048
  5. PREVISCAN [Interacting]
     Indication: ARRHYTHMIA
     Dosage: 20 MG FREQUENCY UNSPECIFIED
     Route: 048
     Dates: start: 20070606, end: 20070801
  6. PREVISCAN [Interacting]
     Dosage: 20 MG FREQUENCY UNSPECIFIED
     Route: 048
     Dates: start: 20070801, end: 20070821

REACTIONS (3)
  - ANAEMIA [None]
  - DRUG INTERACTION [None]
  - MUSCLE HAEMORRHAGE [None]
